FAERS Safety Report 6647964-3 (Version None)
Quarter: 2010Q1

REPORT INFORMATION
  Report Type: 
  Country: None (occurrence: None)
  Receive Date: 20100324
  Receipt Date: 20100311
  Transmission Date: 20100710
  Serious: Yes (Hospitalization, Other)
  Sender: FDA-Public Use
  Company Number: US-ELI_LILLY_AND_COMPANY-US201003004134

PATIENT
  Sex: Male
  Weight: 88.435 kg

DRUGS (13)
  1. BYETTA [Suspect]
     Indication: TYPE 2 DIABETES MELLITUS
     Dosage: 5 UG, 2/D
     Route: 058
  2. BYETTA [Suspect]
     Dosage: 10 UG, DAILY (1/D)
     Route: 058
     Dates: end: 20090101
  3. BYETTA [Suspect]
     Dosage: 5 UG, 2/D
     Route: 058
     Dates: start: 20100308
  4. GLUCOTROL [Concomitant]
     Indication: TYPE 2 DIABETES MELLITUS
     Dosage: 1000 MG, 2/D
  5. ACTOS [Concomitant]
     Indication: TYPE 2 DIABETES MELLITUS
     Dosage: 45 MG, DAILY (1/D)
  6. PROZAC [Concomitant]
     Dosage: 60 MG, EACH MORNING
  7. LISINOPRIL [Concomitant]
     Dosage: 2.5 MG, UNK
  8. AGGRENOX [Concomitant]
     Dosage: UNK, 2/D
  9. ROSUVASTATIN [Concomitant]
     Indication: BLOOD CHOLESTEROL
     Dosage: 20 MG, DAILY (1/D)
  10. BABY ASPIRIN [Concomitant]
  11. MULTI-VITAMIN [Concomitant]
  12. VITAMIN C [Concomitant]
  13. TERAZOSIN HCL [Concomitant]
     Indication: BLOOD PRESSURE

REACTIONS (13)
  - ABASIA [None]
  - BLOOD CREATININE INCREASED [None]
  - DECREASED APPETITE [None]
  - DIZZINESS [None]
  - FALL [None]
  - HYPOKINESIA [None]
  - INCREASED APPETITE [None]
  - LOSS OF CONSCIOUSNESS [None]
  - MUSCULAR WEAKNESS [None]
  - NAUSEA [None]
  - POLYMYALGIA RHEUMATICA [None]
  - VITAMIN D DEFICIENCY [None]
  - WEIGHT DECREASED [None]
